FAERS Safety Report 4317805-8 (Version None)
Quarter: 2004Q1

REPORT INFORMATION
  Report Type: 
  Country: None (occurrence: None)
  Receive Date: 20040312
  Receipt Date: 20040302
  Transmission Date: 20041129
  Serious: Yes (Other)
  Sender: FDA-Public Use
  Company Number: 2004-DE-00982GD

PATIENT
  Age: 54 Year
  Sex: Male

DRUGS (9)
  1. CYCLOPHOSPHAMIDE [Suspect]
     Indication: AMYLOIDOSIS
  2. CYCLOPHOSPHAMIDE [Suspect]
     Indication: LYMPHOPLASMACYTOID LYMPHOMA/IMMUNOCYTOMA
  3. METHOTREXATE [Suspect]
     Indication: AMYLOIDOSIS
     Dosage: IT
     Route: 037
  4. METHOTREXATE [Suspect]
     Indication: LYMPHOPLASMACYTOID LYMPHOMA/IMMUNOCYTOMA
     Dosage: IT
     Route: 037
  5. VINCRISTINE [Suspect]
     Indication: AMYLOIDOSIS
  6. VINCRISTINE [Suspect]
     Indication: LYMPHOPLASMACYTOID LYMPHOMA/IMMUNOCYTOMA
  7. DOXORUBICIN HCL [Suspect]
     Indication: AMYLOIDOSIS
  8. DOXORUBICIN HCL [Suspect]
     Indication: LYMPHOPLASMACYTOID LYMPHOMA/IMMUNOCYTOMA
  9. LEUCOVORIN (FOLINIC ACID) [Concomitant]

REACTIONS (4)
  - AMYLOIDOSIS [None]
  - DISEASE RECURRENCE [None]
  - DRUG EFFECT DECREASED [None]
  - LYMPHOPLASMACYTOID LYMPHOMA/IMMUNOCYTOMA [None]
